FAERS Safety Report 18900056 (Version 1)
Quarter: 2021Q1

REPORT INFORMATION
  Report Type: Spontaneous
  Country: NZ (occurrence: NZ)
  Receive Date: 20210216
  Receipt Date: 20210216
  Transmission Date: 20210420
  Serious: Yes (Other)
  Sender: FDA-Public Use
  Company Number: NZ-UCBSA-2021006804

PATIENT
  Age: 19 Year
  Sex: Female

DRUGS (1)
  1. VIMPAT [Suspect]
     Active Substance: LACOSAMIDE
     Indication: SEIZURE

REACTIONS (5)
  - Seizure [Unknown]
  - Status epilepticus [Unknown]
  - Irritability [Unknown]
  - Behaviour disorder [Unknown]
  - Agitation [Unknown]
